FAERS Safety Report 20475735 (Version 1)
Quarter: 2022Q1

REPORT INFORMATION
  Report Type: Spontaneous
  Country: AT (occurrence: AT)
  Receive Date: 20220215
  Receipt Date: 20220215
  Transmission Date: 20220423
  Serious: Yes (Life-Threatening)
  Sender: FDA-Public Use
  Company Number: None

PATIENT
  Age: 60 Year
  Sex: Female

DRUGS (1)
  1. CARBOPLATIN [Suspect]
     Active Substance: CARBOPLATIN
     Indication: Ovarian cancer
     Dosage: UNK (GEMAB FACHINFORMATION UND ANWENDUNGSEMPFEHLUNGEN)(STRENGHT: 10 MG/ML)
     Route: 065
     Dates: start: 20211013, end: 20211013

REACTIONS (4)
  - Loss of consciousness [Recovered/Resolved]
  - Genital pain [Recovered/Resolved]
  - Pruritus genital [Recovered/Resolved]
  - Type I hypersensitivity [Recovered/Resolved]

NARRATIVE: CASE EVENT DATE: 20211013
